FAERS Safety Report 5023570-1 (Version None)
Quarter: 2006Q2

REPORT INFORMATION
  Report Type: 
  Country: None (occurrence: None)
  Receive Date: 20060612
  Receipt Date: 20060531
  Transmission Date: 20061013
  Serious: Yes (Other)
  Sender: FDA-Public Use
  Company Number: US-ROCHE-450364

PATIENT
  Sex: Male

DRUGS (2)
  1. PEGASYS [Suspect]
     Dosage: ROUTE REPORTED AS INJ.
     Route: 050
  2. COPEGUS [Suspect]
     Dosage: DOSAGE REGIMEN REPORTED AS 3 AM AND 3 PM.
     Route: 048

REACTIONS (1)
  - ACCIDENT [None]
